FAERS Safety Report 23036035 (Version 1)
Quarter: 2023Q4

REPORT INFORMATION
  Report Type: Spontaneous
  Country: BR (occurrence: BR)
  Receive Date: 20231006
  Receipt Date: 20231006
  Transmission Date: 20240109
  Serious: Yes (Hospitalization, Other)
  Sender: FDA-Public Use
  Company Number: BR-AJANTA-2023AJA00228

PATIENT
  Age: 65 Year
  Sex: Female

DRUGS (2)
  1. LAMOTRIGINE [Suspect]
     Active Substance: LAMOTRIGINE
     Indication: Generalised tonic-clonic seizure
  2. LAMOTRIGINE [Suspect]
     Active Substance: LAMOTRIGINE

REACTIONS (1)
  - Acute generalised exanthematous pustulosis [Recovered/Resolved]
